FAERS Safety Report 5768320-6 (Version None)
Quarter: 2008Q2

REPORT INFORMATION
  Report Type: 
  Country: None (occurrence: None)
  Receive Date: 20080612
  Receipt Date: 20080307
  Transmission Date: 20081010
  Serious: No
  Sender: FDA-Public Use
  Company Number: US-ABBOTT-08P-163-0435035-00

PATIENT
  Sex: Male

DRUGS (2)
  1. HUMIRA [Suspect]
     Indication: CROHN'S DISEASE
     Route: 058
     Dates: start: 20070530, end: 20080124
  2. HUMIRA [Suspect]

REACTIONS (7)
  - BACTERIAL INFECTION [None]
  - FATIGUE [None]
  - FEELING HOT [None]
  - IMPAIRED HEALING [None]
  - PAIN [None]
  - PYREXIA [None]
  - SKIN LESION [None]
